FAERS Safety Report 12418405 (Version 3)
Quarter: 2016Q3

REPORT INFORMATION
  Report Type: Spontaneous
  Country: GB (occurrence: GB)
  Receive Date: 20160531
  Receipt Date: 20160714
  Transmission Date: 20161109
  Serious: Yes (Other)
  Sender: FDA-Public Use
  Company Number: GB-ROCHE-1688321

PATIENT
  Sex: Female

DRUGS (1)
  1. HERCEPTIN [Suspect]
     Active Substance: TRASTUZUMAB
     Indication: PRODUCT USED FOR UNKNOWN INDICATION
     Route: 058

REACTIONS (12)
  - Injection site discolouration [Unknown]
  - Constipation [Unknown]
  - Rhinorrhoea [Unknown]
  - Sepsis [Unknown]
  - Night sweats [Not Recovered/Not Resolved]
  - Seasonal allergy [Unknown]
  - Hot flush [Unknown]
  - Visual impairment [Unknown]
  - Joint swelling [Unknown]
  - Dry skin [Unknown]
  - Arthropod bite [Recovered/Resolved]
  - Vaginal haemorrhage [Unknown]
